FAERS Safety Report 9405950 (Version 1)
Quarter: 2013Q3

REPORT INFORMATION
  Report Type: Report from Study
  Country: US (occurrence: US)
  Receive Date: 20130717
  Receipt Date: 20130717
  Transmission Date: 20140515
  Serious: Yes (Death)
  Sender: FDA-Public Use
  Company Number: US-ACTELION-A-US2013-85677

PATIENT
  Age: 68 Year
  Sex: Female

DRUGS (18)
  1. TRACLEER [Suspect]
     Indication: PULMONARY ARTERIAL HYPERTENSION
     Dosage: 125 MG, BID
     Route: 048
     Dates: start: 20121204, end: 20130624
  2. TRACLEER [Suspect]
     Dosage: 62.5 MG, BID
     Route: 048
     Dates: start: 20121009, end: 20121203
  3. REMODULIN [Suspect]
     Dosage: 47 ML/DAY, UNK
     Dates: start: 20120911
  4. REVATIO [Concomitant]
     Dosage: 20 MG, TID
     Dates: start: 20110712
  5. FLUTICASONE [Concomitant]
     Dosage: 1 SPRAY EACH NOSTRIL, BID
     Dates: start: 20110920
  6. FUROSEMIDE [Concomitant]
     Dosage: 40 MG, BID
     Dates: start: 20110816
  7. HYDROCODONE HYDROCHLORIDE W/PARACETAMOL [Concomitant]
     Dosage: 1 UNK, TID
     Dates: start: 20111018
  8. LEVOFLOXACIN [Concomitant]
     Dosage: 500 MG, UNK
     Dates: start: 20130416
  9. LEVOTHYROXINE [Concomitant]
     Dosage: 75 MCG, UNK
     Dates: start: 20110902
  10. MEGESTROL [Concomitant]
     Dosage: 40 MG, UNK
     Dates: start: 20120501
  11. NADOLOL [Concomitant]
     Dosage: 10 MG, UNK
     Dates: start: 20110902
  12. NOVOLOG [Concomitant]
     Dosage: 16 U AM, 11 U PM
     Dates: start: 20110902
  13. PAROXETINE [Concomitant]
     Dosage: 40 MG, UNK
     Dates: start: 20101213
  14. OXYGEN [Concomitant]
     Dosage: 2 L/MIN, UNK
     Dates: start: 20110712
  15. POTASSIUM CHLORIDE [Concomitant]
     Dosage: 20 MEQ, BID
     Dates: start: 20110902
  16. PRAVACHOL [Concomitant]
     Dosage: 20 MG, UNK
     Dates: start: 20110902
  17. SODIUM BICARBONATE [Concomitant]
     Dosage: 325 MG, UNK
     Dates: start: 20130416
  18. XANAX [Concomitant]
     Dosage: 0.25 MG, QPM
     Dates: start: 20120717

REACTIONS (2)
  - Anaemia [Fatal]
  - Thrombocytopenia [Fatal]
